FAERS Safety Report 17229304 (Version 8)
Quarter: 2020Q3

REPORT INFORMATION
  Report Type: Report from Study
  Country: US (occurrence: US)
  Receive Date: 20200103
  Receipt Date: 20200826
  Transmission Date: 20201102
  Serious: No
  Sender: FDA-Public Use
  Company Number: NVSC2020US000682

PATIENT
  Sex: Male

DRUGS (4)
  1. BEOVU [Suspect]
     Active Substance: BROLUCIZUMAB-DBLL
     Dosage: UNK (3RD INJECTION IN RIGHT EYE AND 2ND INJECTION IN THE LEFT EYE)
     Route: 065
     Dates: start: 20200129
  2. BEOVU [Suspect]
     Active Substance: BROLUCIZUMAB-DBLL
     Dosage: BOTH EYES, FIRST INJECTION OF BEOVU IN LEFT EYE AND SECOND INJECTION OF BEOVU IN THE RIGHT EYE
     Route: 047
     Dates: start: 20191231
  3. BEOVU [Suspect]
     Active Substance: BROLUCIZUMAB-DBLL
     Indication: NEOVASCULAR AGE-RELATED MACULAR DEGENERATION
     Dosage: ONE SINGLE DOSE, RIGHT EYE, VIAL
     Route: 050
     Dates: start: 20191203
  4. EYLEA [Suspect]
     Active Substance: AFLIBERCEPT
     Indication: PRODUCT USED FOR UNKNOWN INDICATION
     Route: 065

REACTIONS (4)
  - Vitreous floaters [Unknown]
  - Metamorphopsia [Unknown]
  - Vision blurred [Unknown]
  - Product solubility abnormal [Unknown]
